FAERS Safety Report 8822400 (Version 1)
Quarter: 2012Q4

REPORT INFORMATION
  Report Type: 
  Country: US (occurrence: US)
  Receive Date: 20121003
  Receipt Date: 20121003
  Transmission Date: 20130627
  Serious: No
  Sender: FDA-Public Use
  Company Number: US-PFIZER INC-2012241439

PATIENT
  Age: 58 Year
  Sex: Female
  Weight: 66.21 kg

DRUGS (6)
  1. ESTRING [Suspect]
     Indication: ATROPHIC VULVOVAGINITIS
     Dosage: 2 mg, UNK
     Route: 067
     Dates: start: 20120924
  2. ESTRING [Suspect]
     Indication: VULVOVAGINAL DRYNESS
  3. VAGIFEM [Suspect]
     Indication: ATROPHIC VULVOVAGINITIS
     Dosage: UNK
  4. VAGIFEM [Suspect]
     Indication: VULVOVAGINAL DRYNESS
  5. DOXYCYCLINE [Concomitant]
     Dosage: 100 mg, 2x/day
  6. NORVASC [Concomitant]
     Dosage: UNK, 1x/day

REACTIONS (5)
  - Depression [Not Recovered/Not Resolved]
  - Emotional disorder [Not Recovered/Not Resolved]
  - Nervousness [Not Recovered/Not Resolved]
  - Anxiety [Not Recovered/Not Resolved]
  - Feeling abnormal [Not Recovered/Not Resolved]
